FAERS Safety Report 9051274 (Version 1)
Quarter: 2013Q1

REPORT INFORMATION
  Report Type: Spontaneous
  Country: US (occurrence: US)
  Receive Date: 20130206
  Receipt Date: 20130206
  Transmission Date: 20140127
  Serious: No
  Sender: FDA-Public Use
  Company Number: US-009507513-1302USA001026

PATIENT
  Age: 57 None
  Sex: Male

DRUGS (4)
  1. JANUVIA [Suspect]
     Indication: DIABETES MELLITUS
     Dosage: 100 MG, EVERY NIGHT AT BEDTIME
     Route: 048
     Dates: start: 20130111, end: 20130201
  2. GLUCOPHAGE [Concomitant]
  3. CLARITHROMYCIN [Concomitant]
  4. CEFDINIR [Concomitant]

REACTIONS (1)
  - Tinnitus [Not Recovered/Not Resolved]
